FAERS Safety Report 19492804 (Version 1)
Quarter: 2021Q3

REPORT INFORMATION
  Report Type: Other
  Country: GB (occurrence: GB)
  Receive Date: 20210705
  Receipt Date: 20210705
  Transmission Date: 20211014
  Serious: Yes (Hospitalization)
  Sender: FDA-Public Use
  Company Number: GB-ROCHE-2860553

PATIENT
  Sex: Female

DRUGS (1)
  1. ROACTEMRA [Suspect]
     Active Substance: TOCILIZUMAB
     Indication: GIANT CELL ARTERITIS
     Route: 058
     Dates: start: 20200630

REACTIONS (5)
  - Lower respiratory tract infection [Unknown]
  - Pulmonary embolism [Unknown]
  - COVID-19 [Unknown]
  - Deep vein thrombosis [Unknown]
  - Pneumothorax [Unknown]
